FAERS Safety Report 21179577 (Version 1)
Quarter: 2022Q3

REPORT INFORMATION
  Report Type: Spontaneous
  Country: US (occurrence: None)
  Receive Date: 20220805
  Receipt Date: 20220805
  Transmission Date: 20221027
  Serious: Yes (Life-Threatening, Hospitalization)
  Sender: FDA-Public Use
  Company Number: None

PATIENT
  Age: 73 Year
  Sex: Male

DRUGS (1)
  1. WARFARIN [Suspect]
     Active Substance: WARFARIN
     Indication: Atrial fibrillation
     Dates: start: 20110713

REACTIONS (5)
  - Haematuria [None]
  - Benign prostatic hyperplasia [None]
  - Anticoagulation drug level above therapeutic [None]
  - Therapy interrupted [None]
  - Upper respiratory tract infection [None]

NARRATIVE: CASE EVENT DATE: 20220714
